FAERS Safety Report 7212602-8 (Version None)
Quarter: 2011Q1

REPORT INFORMATION
  Report Type: 
  Country: None (occurrence: None)
  Receive Date: 20110106
  Receipt Date: 20101229
  Transmission Date: 20110831
  Serious: Yes (Other)
  Sender: FDA-Public Use
  Company Number: US-AMGEN-USASP2010002174

PATIENT

DRUGS (9)
  1. MECLIZINE HYDROCHLORIDE [Concomitant]
     Dosage: 50 MG, BID
  2. ADVAIR HFA [Concomitant]
     Dosage: UNK UNK, QD
  3. ATENOLOL [Concomitant]
     Dosage: 50 MG, QD
  4. SINGULAIR [Concomitant]
     Dosage: 10 MG, QD
  5. ENBREL [Suspect]
     Indication: RHEUMATOID ARTHRITIS
     Dosage: 50 MG, QWK
     Route: 058
     Dates: start: 20091030, end: 20101014
  6. PREDNISONE [Concomitant]
     Dosage: 2.5 MG, QD
  7. CALCIUM 600 + D [Concomitant]
     Dosage: 200 MG, BID
  8. LASIX [Concomitant]
     Dosage: 40 MG, QD
  9. ACETAMINOPHEN W/ CODEINE [Concomitant]

REACTIONS (9)
  - DEPRESSION [None]
  - CHEST DISCOMFORT [None]
  - PAIN IN EXTREMITY [None]
  - FEELING ABNORMAL [None]
  - MUSCULOSKELETAL STIFFNESS [None]
  - CHEST PAIN [None]
  - FLUSHING [None]
  - BLOOD PRESSURE INCREASED [None]
  - FATIGUE [None]
